FAERS Safety Report 25718324 (Version 2)
Quarter: 2025Q4

REPORT INFORMATION
  Report Type: Report from Study
  Country: CA (occurrence: CA)
  Receive Date: 20250822
  Receipt Date: 20251007
  Transmission Date: 20260117
  Serious: Yes (Hospitalization)
  Sender: ABBVIE
  Company Number: CA-ABBVIE-6423942

PATIENT
  Sex: Male

DRUGS (2)
  1. RINVOQ [Suspect]
     Active Substance: UPADACITINIB
     Indication: Crohn^s disease
     Dosage: FORM STRENGTH 30 MILLIGRAM
     Route: 048
  2. IMURAN [Suspect]
     Active Substance: AZATHIOPRINE
     Indication: Product used for unknown indication
     Route: 065

REACTIONS (7)
  - Rectal ulcer [Unknown]
  - Arthritis [Unknown]
  - Anorectal disorder [Unknown]
  - Drug ineffective [Unknown]
  - Drug ineffective [Unknown]
  - Inflammatory bowel disease [Unknown]
  - Drug ineffective [Unknown]
